FAERS Safety Report 10265481 (Version 1)
Quarter: 2014Q2

REPORT INFORMATION
  Report Type: Spontaneous
  Country: CN (occurrence: CN)
  Receive Date: 20140627
  Receipt Date: 20140627
  Transmission Date: 20141212
  Serious: Yes (Other)
  Sender: FDA-Public Use
  Company Number: CN-PFIZER INC-2014165923

PATIENT
  Age: 53 Year
  Sex: Male

DRUGS (1)
  1. TAZOCIN [Suspect]
     Indication: LUNG INFECTION
     Dosage: 13.5 G, 1X/DAY
     Route: 041
     Dates: start: 20131109, end: 20131111

REACTIONS (1)
  - Epilepsy [Recovering/Resolving]
